FAERS Safety Report 11640406 (Version 1)
Quarter: 2015Q4

REPORT INFORMATION
  Report Type: Report from Study
  Country: AU (occurrence: AU)
  Receive Date: 20151019
  Receipt Date: 20151019
  Transmission Date: 20160304
  Serious: Yes (Other)
  Sender: FDA-Public Use
  Company Number: AU-BAYER-2015-443795

PATIENT
  Age: 84 Year

DRUGS (2)
  1. SALINE [SODIUM CHLORIDE] [Concomitant]
     Dosage: 980 ML PER HOUR
     Route: 042
  2. ULTRAVIST [Suspect]
     Active Substance: IOPROMIDE
     Indication: SCAN WITH CONTRAST
     Route: 042

REACTIONS (1)
  - Nephropathy toxic [None]
